FAERS Safety Report 14048492 (Version 10)
Quarter: 2019Q4

REPORT INFORMATION
  Report Type: Spontaneous
  Country: KR (occurrence: KR)
  Receive Date: 20171005
  Receipt Date: 20191216
  Transmission Date: 20200122
  Serious: Yes (Other)
  Sender: FDA-Public Use
  Company Number: KR-009507513-1710KOR001161

PATIENT
  Age: 53 Year
  Sex: Female

DRUGS (19)
  1. NOXAFIL [Suspect]
     Active Substance: POSACONAZOLE
     Indication: ANTIFUNGAL PROPHYLAXIS
     Dosage: 300 MILLIGRAM, BID (TWICE A DAY)
     Route: 048
     Dates: start: 20170607, end: 20170607
  2. LASIX [Concomitant]
     Active Substance: FUROSEMIDE
     Indication: PROPHYLAXIS
     Dosage: 20 MILLIGRAM, QD (ONCE DAILY)
     Route: 042
     Dates: start: 20170603, end: 20170603
  3. LASIX [Concomitant]
     Active Substance: FUROSEMIDE
     Dosage: 20 MILLIGRAM, QD (ONCE DAILY)
     Route: 042
     Dates: start: 20170609, end: 20170610
  4. PHYTONADIONE. [Concomitant]
     Active Substance: PHYTONADIONE
     Dosage: 10 MILLIGRAM, QD (ONCE DAILY)
     Route: 042
     Dates: start: 20170612, end: 20170612
  5. SEPTRIN [Concomitant]
     Active Substance: SULFAMETHOXAZOLE\TRIMETHOPRIM
     Indication: INFECTION PROPHYLAXIS
     Dosage: 2 TABLET, QOD (ONCE 2 DAYS)
     Route: 048
     Dates: start: 20170607, end: 20170614
  6. ZYLORIC [Concomitant]
     Active Substance: ALLOPURINOL
     Indication: PROPHYLAXIS
     Dosage: 300 MILLIGRAM, QD (ONCE DAILY)
     Route: 048
     Dates: start: 20170603, end: 20170613
  7. VESANOID [Concomitant]
     Active Substance: TRETINOIN
     Dosage: 40 MILLIGRAM, QD (ONCE DAILY)
     Route: 048
     Dates: start: 20170605, end: 20170605
  8. ZAVEL [Concomitant]
     Active Substance: IDARUBICIN HYDROCHLORIDE
     Indication: ACUTE MYELOID LEUKAEMIA
     Dosage: 18 MILLIGRAM, QD (ONCE DAILY)
     Route: 042
     Dates: start: 20170607, end: 20170609
  9. SODIUM BICARBONATE. [Concomitant]
     Active Substance: SODIUM BICARBONATE
     Indication: PROPHYLAXIS
     Dosage: 50 MILLILITER, QD (ONCE DAILY); CONCENTRATION ALSO REPORTED AS 20 ML.
     Route: 042
     Dates: start: 20170603, end: 20170615
  10. VESANOID [Concomitant]
     Active Substance: TRETINOIN
     Indication: ACUTE MYELOID LEUKAEMIA
     Dosage: 30 MILLIGRAM, QD (ONCE DAILY)
     Route: 048
     Dates: start: 20170604, end: 20170604
  11. PLAKON [Concomitant]
     Indication: PROPHYLAXIS
     Dosage: 3 MILLIGRAM, QD (ONCE DAILY); STRENGTH: 3 MG/2ML
     Route: 042
     Dates: start: 20170607, end: 20170612
  12. ALOXI [Concomitant]
     Active Substance: PALONOSETRON HYDROCHLORIDE
     Indication: PROPHYLAXIS OF NAUSEA AND VOMITING
     Dosage: 0.25 MG, QD (ONCE DAILY)
     Route: 042
     Dates: start: 20170607, end: 20170607
  13. NOXAFIL [Suspect]
     Active Substance: POSACONAZOLE
     Dosage: 300 MILLIGRAM, QD (ONCE A DAY)
     Route: 048
     Dates: start: 20170608, end: 20170612
  14. LASIX [Concomitant]
     Active Substance: FUROSEMIDE
     Dosage: 20 MILLIGRAM, QD (ONCE DAILY)
     Route: 042
     Dates: start: 20170606, end: 20170606
  15. ZOYLEX [Concomitant]
     Indication: INFECTION PROPHYLAXIS
     Dosage: 400 MILLIGRAM, BID (TWICE A DAY)
     Route: 048
     Dates: start: 20170607, end: 20170617
  16. MAXIPIME [Concomitant]
     Active Substance: CEFEPIME HYDROCHLORIDE
     Indication: INFECTION PROPHYLAXIS
     Dosage: 2 GRAM, TID (THREE TIMES A DAY)
     Route: 042
     Dates: start: 20170603, end: 20170608
  17. CYTARABINE. [Suspect]
     Active Substance: CYTARABINE
     Indication: ACUTE MYELOID LEUKAEMIA
     Dosage: 310 MILLIGRAM, QD (ONCE DAILY)
     Route: 042
     Dates: start: 20170607, end: 20170613
  18. PHYTONADIONE. [Concomitant]
     Active Substance: PHYTONADIONE
     Indication: HAEMORRHAGE PROPHYLAXIS
     Dosage: 10 MILLIGRAM, QD (ONCE DAILY)
     Route: 042
     Dates: start: 20170605, end: 20170605
  19. PROVERA [Concomitant]
     Active Substance: MEDROXYPROGESTERONE ACETATE
     Indication: UTERINE LEIOMYOMA
     Dosage: 10 MILLIGRAM, QD (ONCE DAILY)
     Route: 048
     Dates: start: 20170604, end: 20170613

REACTIONS (2)
  - Hypophosphataemia [Recovered/Resolved]
  - Febrile neutropenia [Unknown]

NARRATIVE: CASE EVENT DATE: 20170608
